FAERS Safety Report 5657314-7 (Version None)
Quarter: 2008Q1

REPORT INFORMATION
  Report Type: 
  Country: None (occurrence: None)
  Receive Date: 20080310
  Receipt Date: 20080229
  Transmission Date: 20080703
  Serious: Yes (Other)
  Sender: FDA-Public Use
  Company Number: US-PFIZER INC-2008019094

PATIENT
  Sex: Female
  Weight: 131.81 kg

DRUGS (13)
  1. CELEBREX [Suspect]
     Indication: PAIN
     Route: 048
  2. CELEBREX [Suspect]
     Indication: INFLAMMATION
  3. TOPROL-XL [Concomitant]
     Indication: BLOOD PRESSURE
     Route: 048
  4. MICARDIS [Concomitant]
     Indication: PAIN
     Route: 048
  5. PRILOSEC [Concomitant]
     Indication: GASTRIC DISORDER
     Route: 048
  6. VITAMINS [Concomitant]
     Route: 048
  7. MAGNESIUM [Concomitant]
     Route: 048
  8. ALLEGRA D 24 HOUR [Concomitant]
     Indication: HYPERSENSITIVITY
     Route: 048
  9. VENASTAT [Concomitant]
     Indication: MUSCLE SPASMS
     Route: 048
  10. OXYCODONE HCL [Concomitant]
     Route: 048
  11. FUROSEMIDE [Concomitant]
     Route: 048
  12. TRAZODONE HCL [Concomitant]
     Route: 048
  13. TEMAZEPAM [Concomitant]
     Indication: INSOMNIA
     Route: 048

REACTIONS (3)
  - ABDOMINAL PAIN [None]
  - DIARRHOEA [None]
  - RENAL CELL CARCINOMA [None]
